FAERS Safety Report 16539014 (Version 1)
Quarter: 2019Q3

REPORT INFORMATION
  Report Type: Spontaneous
  Country: US (occurrence: US)
  Receive Date: 20190524
  Receipt Date: 20190524
  Transmission Date: 20191004
  Serious: No
  Sender: FDA-Public Use
  Company Number: None

PATIENT
  Age: 36 Year
  Sex: Female

DRUGS (1)
  1. CYCLOSPORINE CAP  100MG MD [Suspect]
     Active Substance: CYCLOSPORINE
     Dates: start: 20190524

REACTIONS (2)
  - Nausea [None]
  - Blood pressure diastolic increased [None]

NARRATIVE: CASE EVENT DATE: 20190524
